FAERS Safety Report 5797149-8 (Version None)
Quarter: 2008Q2

REPORT INFORMATION
  Report Type: 
  Country: None (occurrence: None)
  Receive Date: 20080618
  Receipt Date: 20071108
  Transmission Date: 20081010
  Serious: Yes (Other)
  Sender: FDA-Public Use
  Company Number: 200717150US

PATIENT
  Sex: Female
  Weight: 65.3 kg

DRUGS (6)
  1. LANTUS [Suspect]
     Indication: TYPE 1 DIABETES MELLITUS
     Dosage: 30 U QAM SC
     Route: 058
  2. LANTUS [Suspect]
     Indication: TYPE 1 DIABETES MELLITUS
     Dosage: 30 U QAM SC
     Route: 058
  3. NOVOLOG [Suspect]
     Indication: DIABETES MELLITUS
     Dates: start: 19700101
  4. COZAAR [Concomitant]
  5. LEVOTHYROXINE SODIUM (LEVOTHYROID) [Concomitant]
  6. CHOLESTEROL REDUCER [Concomitant]

REACTIONS (3)
  - BLOOD GLUCOSE INCREASED [None]
  - HYPOGLYCAEMIA [None]
  - NERVOUSNESS [None]
